FAERS Safety Report 19157289 (Version 2)
Quarter: 2021Q2

REPORT INFORMATION
  Report Type: Spontaneous
  Country: NL (occurrence: NL)
  Receive Date: 20210420
  Receipt Date: 20210507
  Transmission Date: 20210717
  Serious: Yes (Life-Threatening)
  Sender: FDA-Public Use
  Company Number: NL-ORGANON-O2104NLD001256

PATIENT
  Age: 14 Year
  Sex: Male
  Weight: 82 kg

DRUGS (1)
  1. MAXALT [Suspect]
     Active Substance: RIZATRIPTAN BENZOATE
     Indication: MIGRAINE
     Dosage: 10 MILLIGRAM, IF NECESSARY, 1 TABLET
     Dates: start: 20210316, end: 20210316

REACTIONS (3)
  - Angioedema [Recovered/Resolved]
  - Stridor [Recovered/Resolved]
  - Swelling [Recovered/Resolved]

NARRATIVE: CASE EVENT DATE: 20210316
